FAERS Safety Report 12705043 (Version 1)
Quarter: 2016Q3

REPORT INFORMATION
  Report Type: Spontaneous
  Country: US (occurrence: None)
  Receive Date: 20160831
  Receipt Date: 20160831
  Transmission Date: 20161109
  Serious: No
  Sender: FDA-Public Use
  Company Number: None

PATIENT
  Age: 23 Year
  Sex: Female
  Weight: 63.5 kg

DRUGS (1)
  1. CEFDINIR, 300 MG LUPIN [Suspect]
     Active Substance: CEFDINIR
     Indication: IMPETIGO
     Dosage: 20 CAPSULE(S) EVERY 12 HOURS TAKEN BY MOUTH
     Route: 048
     Dates: start: 20160826, end: 20160828

REACTIONS (1)
  - Urticaria [None]

NARRATIVE: CASE EVENT DATE: 20160827
